FAERS Safety Report 10169613 (Version 2)
Quarter: 2014Q2

REPORT INFORMATION
  Report Type: Report from Study
  Country: US (occurrence: US)
  Receive Date: 20140513
  Receipt Date: 20140513
  Transmission Date: 20141212
  Serious: Yes (Other)
  Sender: FDA-Public Use
  Company Number: US-BAXTER-2014BAX021014

PATIENT
  Age: 18 Year
  Sex: Male

DRUGS (4)
  1. ADVATE [Suspect]
     Indication: HAEMOPHILIA
     Route: 065
     Dates: start: 2004
  2. ADVATE [Suspect]
     Route: 065
     Dates: start: 201302
  3. ADVATE [Suspect]
     Route: 042
     Dates: start: 20140217
  4. CELEBREX [Concomitant]
     Indication: PAIN
     Route: 048
     Dates: start: 201012, end: 201112

REACTIONS (3)
  - Haemorrhage [Recovered/Resolved]
  - Factor VIII inhibition [Recovered/Resolved]
  - Ligament sprain [Recovered/Resolved]
